FAERS Safety Report 19456266 (Version 2)
Quarter: 2021Q3

REPORT INFORMATION
  Report Type: Spontaneous
  Country: US (occurrence: US)
  Receive Date: 20210624
  Receipt Date: 20210722
  Transmission Date: 20211014
  Serious: Yes (Other)
  Sender: FDA-Public Use
  Company Number: US-ORGANON-O2106USA001673

PATIENT
  Sex: Female

DRUGS (1)
  1. NEXPLANON [Suspect]
     Active Substance: ETONOGESTREL
     Indication: CONTRACEPTION
     Dosage: 1 IMPLANT OF 68MG, ONCE EVERY 3 YEARS
     Route: 059
     Dates: start: 202103

REACTIONS (2)
  - Surgery [Unknown]
  - Adverse event [Unknown]

NARRATIVE: CASE EVENT DATE: 2021
